FAERS Safety Report 9096056 (Version 2)
Quarter: 2013Q4

REPORT INFORMATION
  Report Type: Spontaneous
  Country: GB (occurrence: GB)
  Receive Date: 20130207
  Receipt Date: 20131007
  Transmission Date: 20140711
  Serious: Yes (Hospitalization)
  Sender: FDA-Public Use
  Company Number: GB-TEVA-349205ISR

PATIENT
  Age: 84 Year
  Sex: Male
  Weight: 62 kg

DRUGS (8)
  1. RAMIPRIL [Suspect]
     Dosage: 1.25 MILLIGRAM DAILY;
     Dates: start: 20120706
  2. RAMIPRIL [Suspect]
     Dates: start: 20120402, end: 20120704
  3. RAMIPRIL [Suspect]
     Dosage: 1.25 MILLIGRAM DAILY;
     Dates: start: 20111010, end: 20120625
  4. LANSOPRAZOLE [Concomitant]
     Dates: start: 20120321, end: 20120418
  5. FOLIC ACID [Concomitant]
     Dates: start: 20120321
  6. ZOPICLONE [Concomitant]
     Dates: start: 20120402
  7. MACROGOL [Concomitant]
     Dates: start: 20120402, end: 20120623
  8. PARACETAMOL [Concomitant]
     Dates: start: 20120525, end: 20120619

REACTIONS (4)
  - Renal failure acute [Recovering/Resolving]
  - Dehydration [Unknown]
  - Abdominal pain [Unknown]
  - C-reactive protein increased [Unknown]
